FAERS Safety Report 7746306-X (Version None)
Quarter: 2011Q3

REPORT INFORMATION
  Report Type: 
  Country: None (occurrence: None)
  Receive Date: 20110913
  Receipt Date: 20110902
  Transmission Date: 20111222
  Serious: Yes (Hospitalization, Other)
  Sender: FDA-Public Use
  Company Number: US-BAYER-2011-003132

PATIENT
  Age: 14 Year
  Sex: Female
  Weight: 68.027 kg

DRUGS (5)
  1. HYOMAX [Concomitant]
  2. YAZ [Suspect]
     Indication: MENSTRUAL CYCLE MANAGEMENT
     Dosage: UNK
     Dates: start: 20090101, end: 20090501
  3. PANTOPRAZOLE [Concomitant]
  4. ONDANSETRON [Concomitant]
  5. YAZ [Suspect]
     Indication: PREMENSTRUAL SYNDROME
     Dosage: UNK
     Dates: start: 20081201

REACTIONS (3)
  - BILIARY DYSKINESIA [None]
  - GALLBLADDER INJURY [None]
  - PAIN [None]
